FAERS Safety Report 10051175 (Version 2)
Quarter: 2014Q2

REPORT INFORMATION
  Report Type: Spontaneous
  Country: US (occurrence: US)
  Receive Date: 20140401
  Receipt Date: 20140404
  Transmission Date: 20141212
  Serious: No
  Sender: FDA-Public Use
  Company Number: US-BAYER-2014-047717

PATIENT
  Age: 57 Year
  Sex: Female

DRUGS (1)
  1. CLIMARA [Suspect]
     Route: 062

REACTIONS (6)
  - Drug ineffective [None]
  - Product adhesion issue [None]
  - Hot flush [None]
  - Insomnia [None]
  - Affect lability [None]
  - Emotional disorder [None]
